FAERS Safety Report 15646163 (Version 2)
Quarter: 2018Q4

REPORT INFORMATION
  Report Type: Spontaneous
  Country: US (occurrence: US)
  Receive Date: 20181121
  Receipt Date: 20181206
  Transmission Date: 20190205
  Serious: No
  Sender: FDA-Public Use
  Company Number: US-AMGEN INC.-USASP2018166347

PATIENT
  Age: 56 Year
  Sex: Male
  Weight: 86.17 kg

DRUGS (9)
  1. BOTOX [Concomitant]
     Active Substance: ONABOTULINUMTOXINA
     Indication: MIGRAINE
     Dosage: UNK, 155 UNITS, Q3MO
     Dates: start: 20170830
  2. AZELASTINE. [Concomitant]
     Active Substance: AZELASTINE HYDROCHLORIDE
     Dosage: UNK
  3. OXYBUTYNIN. [Concomitant]
     Active Substance: OXYBUTYNIN CHLORIDE
     Dosage: UNK
  4. ALFAZOSIN [Concomitant]
     Active Substance: ALFUZOSIN
     Dosage: UNK
  5. BIOTEX [Concomitant]
     Dosage: UNK UNK, QD (MULTIPLE TIMES DAILY)
  6. SILDENAFIL. [Concomitant]
     Active Substance: SILDENAFIL
     Dosage: UNK
  7. CELECOXIB. [Concomitant]
     Active Substance: CELECOXIB
     Dosage: UNK
  8. AIMOVIG [Suspect]
     Active Substance: ERENUMAB-AOOE
     Indication: MIGRAINE PROPHYLAXIS
     Dosage: 70 MG/28 DAYS
     Route: 058
     Dates: start: 20180916
  9. RIZATRIPTAN. [Concomitant]
     Active Substance: RIZATRIPTAN

REACTIONS (4)
  - Oral discomfort [Not Recovered/Not Resolved]
  - Constipation [Not Recovered/Not Resolved]
  - Wrong technique in product usage process [Unknown]
  - Chapped lips [Not Recovered/Not Resolved]

NARRATIVE: CASE EVENT DATE: 2018
